FAERS Safety Report 11971173 (Version 1)
Quarter: 2016Q1

REPORT INFORMATION
  Report Type: Spontaneous
  Country: US (occurrence: None)
  Receive Date: 20160127
  Receipt Date: 20160127
  Transmission Date: 20160526
  Serious: Yes (Hospitalization)
  Sender: FDA-Public Use
  Company Number: None

PATIENT
  Age: 65 Year
  Sex: Male
  Weight: 126.1 kg

DRUGS (1)
  1. WARFARIN [Suspect]
     Active Substance: WARFARIN
     Indication: ATRIAL FIBRILLATION

REACTIONS (5)
  - Haemorrhage [None]
  - Haematochezia [None]
  - International normalised ratio increased [None]
  - Confusional state [None]
  - Gastric haemorrhage [None]

NARRATIVE: CASE EVENT DATE: 20151105
